FAERS Safety Report 6194377-7 (Version None)
Quarter: 2009Q2

REPORT INFORMATION
  Report Type: 
  Country: None (occurrence: None)
  Receive Date: 20090519
  Receipt Date: 20090512
  Transmission Date: 20091009
  Serious: Yes (Hospitalization, Other)
  Sender: FDA-Public Use
  Company Number: US-BAYER-200914249NA

PATIENT
  Age: 42 Year
  Sex: Female
  Weight: 113 kg

DRUGS (1)
  1. MIRENA [Suspect]
     Indication: MENSTRUATION IRREGULAR
     Dosage: CONTINUOUS
     Route: 015
     Dates: start: 20090121, end: 20090225

REACTIONS (3)
  - APHASIA [None]
  - DYSPHEMIA [None]
  - MIGRAINE [None]
